FAERS Safety Report 9834208 (Version 1)
Quarter: 2014Q1

REPORT INFORMATION
  Report Type: Not Available
  Country: GB (occurrence: GB)
  Receive Date: 20140122
  Receipt Date: 20140122
  Transmission Date: 20141002
  Serious: Yes (Disabling, Other)
  Sender: FDA-Public Use
  Company Number: GB-ASTELLAS-2014EU000339

PATIENT
  Age: 31 Year
  Sex: Female
  Weight: 45 kg

DRUGS (1)
  1. PROTOPIC [Suspect]
     Indication: ECZEMA
     Dosage: UNK
     Route: 061
     Dates: start: 20120201, end: 20130301

REACTIONS (8)
  - Exophthalmos [Unknown]
  - Dry skin [Unknown]
  - Eye pain [Unknown]
  - Basedow^s disease [Not Recovered/Not Resolved]
  - Endocrine ophthalmopathy [Not Recovered/Not Resolved]
  - Alopecia [Unknown]
  - Palpitations [Unknown]
  - Weight decreased [Unknown]
